FAERS Safety Report 10155480 (Version 1)
Quarter: 2014Q2

REPORT INFORMATION
  Report Type: Spontaneous
  Country: US (occurrence: US)
  Receive Date: 20140506
  Receipt Date: 20140506
  Transmission Date: 20141212
  Serious: Yes (Other)
  Sender: FDA-Public Use
  Company Number: US-009507513-1405USA001507

PATIENT
  Sex: Female

DRUGS (2)
  1. NUVARING [Suspect]
     Indication: CONTRACEPTION
     Dosage: UNK
     Route: 067
     Dates: start: 201205, end: 201211
  2. NUVARING [Suspect]
     Dosage: UNK
     Route: 067
     Dates: start: 201303, end: 201303

REACTIONS (2)
  - Abortion spontaneous [Recovered/Resolved]
  - Maternal exposure before pregnancy [Recovered/Resolved]
